FAERS Safety Report 8591971-0 (Version None)
Quarter: 2012Q3

REPORT INFORMATION
  Report Type: 
  Country: None (occurrence: None)
  Receive Date: 20120814
  Receipt Date: 20120806
  Transmission Date: 20120928
  Serious: Yes (Other)
  Sender: FDA-Public Use
  Company Number: US-BAYER-2012-081331

PATIENT
  Sex: Female

DRUGS (3)
  1. YAZ [Suspect]
     Dosage: UNK
     Dates: start: 20101101
  2. YASMIN [Suspect]
     Dosage: UNK
     Dates: start: 20101101
  3. DROSPIRENONE AND ETHINYL ESTRADIOL [Suspect]
     Dosage: UNK
     Dates: start: 20101101

REACTIONS (4)
  - CEREBROVASCULAR INSUFFICIENCY [None]
  - PAIN [None]
  - THROMBOSIS [None]
  - INJURY [None]
